FAERS Safety Report 17458728 (Version 1)
Quarter: 2020Q1

REPORT INFORMATION
  Report Type: Spontaneous
  Country: GB (occurrence: GB)
  Receive Date: 20200225
  Receipt Date: 20200225
  Transmission Date: 20200409
  Serious: Yes (Disabling)
  Sender: FDA-Public Use
  Company Number: GB-AMGEN-GBRSP2020029381

PATIENT
  Age: 73 Year
  Sex: Female

DRUGS (7)
  1. FYBOGEL [Concomitant]
     Active Substance: PLANTAGO OVATA SEED
  2. PROLIA [Suspect]
     Active Substance: DENOSUMAB
     Indication: OSTEOPOROSIS
     Dosage: 60 MILLIGRAM
     Route: 058
     Dates: start: 20181001, end: 20190909
  3. ADCAL D3 [Concomitant]
     Active Substance: CALCIUM CARBONATE\CHOLECALCIFEROL
  4. RIVAROXABAN [Concomitant]
     Active Substance: RIVAROXABAN
  5. LOSARTAN POTASSIUM. [Concomitant]
     Active Substance: LOSARTAN POTASSIUM
  6. OMEPRAZOLE SODIUM [Concomitant]
     Active Substance: OMEPRAZOLE SODIUM
  7. BISOPROLOL FUMARATE. [Concomitant]
     Active Substance: BISOPROLOL FUMARATE

REACTIONS (1)
  - Iritis [Recovered/Resolved with Sequelae]

NARRATIVE: CASE EVENT DATE: 20181101
